FAERS Safety Report 4609800-6 (Version None)
Quarter: 2005Q1

REPORT INFORMATION
  Report Type: 
  Country: None (occurrence: None)
  Receive Date: 20050314
  Receipt Date: 20050302
  Transmission Date: 20050727
  Serious: Yes (Death)
  Sender: FDA-Public Use
  Company Number: HQWYE786503MAR05

PATIENT
  Sex: Male

DRUGS (1)
  1. MYLOTARG [Suspect]
     Indication: ACUTE MYELOID LEUKAEMIA
     Dosage: 9MG/M^2 INTRAVENOUS
     Route: 042

REACTIONS (1)
  - LOWER RESPIRATORY TRACT INFECTION [None]
